FAERS Safety Report 4712432-2 (Version None)
Quarter: 2005Q3

REPORT INFORMATION
  Report Type: 
  Country: None (occurrence: None)
  Receive Date: 20050711
  Receipt Date: 20050628
  Transmission Date: 20060218
  Serious: Yes (Hospitalization)
  Sender: FDA-Public Use
  Company Number: 2005SP001637

PATIENT
  Age: 40 Year
  Sex: Female

DRUGS (4)
  1. LUNESTA [Suspect]
     Indication: INSOMNIA
     Dosage: 2 MG ORAL
     Route: 048
     Dates: start: 20050101, end: 20050101
  2. AMBIEN [Concomitant]
  3. NEURONTIN [Concomitant]
  4. GASTROINTESTINAL MEDICATION [Concomitant]

REACTIONS (4)
  - CONFUSIONAL STATE [None]
  - DISORIENTATION [None]
  - OVERDOSE [None]
  - SYNCOPE [None]
